FAERS Safety Report 8485718-6 (Version None)
Quarter: 2012Q2

REPORT INFORMATION
  Report Type: 
  Country: None (occurrence: None)
  Receive Date: 20120626
  Receipt Date: 20120618
  Transmission Date: 20120825
  Serious: Yes (Other)
  Sender: FDA-Public Use
  Company Number: FK201201706

PATIENT
  Age: 56 Year
  Sex: Male

DRUGS (7)
  1. ACYCLOVIR SODIUM [Suspect]
     Indication: HERPES ZOSTER
     Dosage: 500 MG, IV IN TWO DIVIDED DOSES
     Route: 042
  2. AMLODIPINE [Concomitant]
  3. IRON (IRON) [Concomitant]
  4. ACE INHIBITOR (ACE INHIBITOR NOS) [Concomitant]
  5. ASPIRIN [Concomitant]
  6. CALCIUM CARBONATE (CACLCIUM CARBONATE) [Concomitant]
  7. ERYTHROPOIETIN (ERYTHROPOIENTIN) [Concomitant]

REACTIONS (6)
  - NEUROTOXICITY [None]
  - HALLUCINATION, AUDITORY [None]
  - DYSARTHRIA [None]
  - DISORIENTATION [None]
  - INSOMNIA [None]
  - CONFUSIONAL STATE [None]
